FAERS Safety Report 9120758 (Version 1)
Quarter: 2013Q1

REPORT INFORMATION
  Report Type: Spontaneous
  Country: US (occurrence: US)
  Receive Date: 20130226
  Receipt Date: 20130226
  Transmission Date: 20140127
  Serious: No
  Sender: FDA-Public Use
  Company Number: US-MYLANLABS-2012S1002647

PATIENT
  Age: 52 Year
  Sex: Male

DRUGS (5)
  1. LAMOTRIGINE [Suspect]
     Indication: BIPOLAR DISORDER
     Route: 048
     Dates: start: 201111
  2. LAMOTRIGINE [Suspect]
     Indication: BIPOLAR DISORDER
     Route: 048
     Dates: start: 201111
  3. GEODON [Concomitant]
     Indication: BIPOLAR DISORDER
     Route: 048
  4. COGENTIN [Concomitant]
     Indication: PARKINSONISM
     Route: 048
  5. CYMBALTA [Concomitant]
     Indication: DEPRESSION
     Route: 048

REACTIONS (1)
  - Rash pruritic [Not Recovered/Not Resolved]
